FAERS Safety Report 14058050 (Version 1)
Quarter: 2017Q4

REPORT INFORMATION
  Report Type: Report from Study
  Country: US (occurrence: US)
  Receive Date: 20171006
  Receipt Date: 20171006
  Transmission Date: 20180321
  Serious: Yes (Hospitalization, Other)
  Sender: FDA-Public Use
  Company Number: US-GILEAD-2017-0297046

PATIENT
  Age: 70 Year
  Sex: Male

DRUGS (3)
  1. IDELALISIB [Suspect]
     Active Substance: IDELALISIB
     Indication: CHRONIC LYMPHOCYTIC LEUKAEMIA
     Dosage: 150 MG, BID
     Route: 048
     Dates: start: 20170818
  2. IMMUNOGLOBULIN                     /00025201/ [Concomitant]
     Active Substance: HUMAN IMMUNOGLOBULIN G
     Dosage: UNK, Q4WK
     Route: 042
  3. RITUXAN [Concomitant]
     Active Substance: RITUXIMAB
     Dosage: UNK, Q4WK
     Route: 042

REACTIONS (2)
  - Lymphadenopathy [Not Recovered/Not Resolved]
  - Salmonellosis [Unknown]

NARRATIVE: CASE EVENT DATE: 2017
